FAERS Safety Report 5632932-0 (Version None)
Quarter: 2008Q1

REPORT INFORMATION
  Report Type: 
  Country: None (occurrence: None)
  Receive Date: 20080213
  Receipt Date: 20080131
  Transmission Date: 20080703
  Serious: Yes (Other)
  Sender: FDA-Public Use
  Company Number: WAES 0801FRA00088

PATIENT
  Age: 53 Year
  Sex: Male

DRUGS (11)
  1. ISENTRESS [Suspect]
     Indication: HIV INFECTION
     Dosage: 400 MG/BID
     Route: 048
     Dates: start: 20070626, end: 20070913
  2. ISENTRESS [Suspect]
     Indication: HIV INFECTION
     Dosage: 400 MG/BID
     Route: 048
     Dates: start: 20071226, end: 20080114
  3. FOSAMPRENAVIR CALCIUM [Concomitant]
  4. LOPERAMIDE HCL [Concomitant]
  5. NEVIRAPINE [Concomitant]
  6. PRAVASTATIN SODIUM [Concomitant]
  7. TAB EMTRICITABINE (+) TENOFOVIR DISOPROXIL FUMA PO [Suspect]
     Indication: HIV INFECTION
     Dosage: 1 TAB/DAILY
     Route: 048
     Dates: start: 20071226, end: 20080114
  8. TAB TIPRANAVIR [Suspect]
     Indication: HIV INFECTION
     Dosage: 500 MG/BID
     Route: 048
     Dates: start: 20071226, end: 20080114
  9. CAP RITONAVIR [Suspect]
     Indication: HIV INFECTION
     Dosage: 200 MG/BID
     Route: 048
     Dates: start: 20070605, end: 20080114
  10. TAB MARAVIROC [Suspect]
     Indication: HIV INFECTION
     Dosage: 300 MG/BID
     Route: 048
     Dates: start: 20071226, end: 20080114
  11. DIDANOSINE [Suspect]
     Indication: HIV INFECTION
     Dosage: 250 MG/DAILY
     Route: 048
     Dates: start: 20071226, end: 20080114

REACTIONS (2)
  - CYTOLYTIC HEPATITIS [None]
  - NO THERAPEUTIC RESPONSE [None]
